FAERS Safety Report 9153004 (Version 1)
Quarter: 2013Q1

REPORT INFORMATION
  Report Type: Spontaneous
  Country: US (occurrence: US)
  Receive Date: 20130310
  Receipt Date: 20130310
  Transmission Date: 20140127
  Serious: Yes (Death, Other)
  Sender: FDA-Public Use
  Company Number: US-TEVA-390200USA

PATIENT
  Sex: Male

DRUGS (5)
  1. AMLODIPINE [Suspect]
  2. DIPHENHYDRAMINE [Suspect]
  3. METFORMIN [Suspect]
  4. METOPROLOL [Suspect]
  5. PARACETAMOL [Suspect]

REACTIONS (1)
  - Death [Fatal]
